FAERS Safety Report 25432137 (Version 2)
Quarter: 2025Q3

REPORT INFORMATION
  Report Type: Report from Study
  Country: EU (occurrence: EU)
  Receive Date: 20250613
  Receipt Date: 20250714
  Transmission Date: 20251020
  Serious: Yes (Hospitalization)
  Sender: NOVARTIS
  Company Number: EU-002147023-NVSC2025PT092932

PATIENT
  Age: 60 Year
  Sex: Male

DRUGS (1)
  1. KESIMPTA [Suspect]
     Active Substance: OFATUMUMAB
     Indication: Relapsing-remitting multiple sclerosis
     Dosage: 20 MG, 28D
     Route: 058
     Dates: start: 20230705, end: 202503

REACTIONS (1)
  - Fasciitis [Recovering/Resolving]

NARRATIVE: CASE EVENT DATE: 20250402
